FAERS Safety Report 8327952-1 (Version None)
Quarter: 2012Q2

REPORT INFORMATION
  Report Type: 
  Country: None (occurrence: None)
  Receive Date: 20120430
  Receipt Date: 20120419
  Transmission Date: 20120825
  Serious: Yes (Death)
  Sender: FDA-Public Use
  Company Number: UTC-017939

PATIENT
  Age: 44 Year
  Sex: Female
  Weight: 76.3 kg

DRUGS (4)
  1. DIURETICS (DIURETICS) [Concomitant]
  2. REVATIO [Concomitant]
  3. REMODULIN [Suspect]
     Indication: PULMONARY ARTERIAL HYPERTENSION
     Dosage: (0.209 UG/KG), INTRAVENOUS
     Route: 042
     Dates: start: 20111005
  4. COUMADIN [Concomitant]

REACTIONS (1)
  - DEATH [None]
